FAERS Safety Report 9296378 (Version 1)
Quarter: 2013Q2

REPORT INFORMATION
  Report Type: Spontaneous
  Country: FR (occurrence: FR)
  Receive Date: 20130517
  Receipt Date: 20130517
  Transmission Date: 20140414
  Serious: Yes (Disabling)
  Sender: FDA-Public Use
  Company Number: FR-BRISTOL-MYERS SQUIBB COMPANY-18889139

PATIENT
  Age: 51 Year
  Sex: Male

DRUGS (11)
  1. SUSTIVA TABS 600 MG [Suspect]
     Indication: HIV INFECTION
     Route: 048
     Dates: start: 2005
  2. NORVIR [Suspect]
     Indication: HIV INFECTION
     Route: 048
     Dates: start: 2005
  3. IMMUGRIP [Suspect]
     Indication: INFLUENZA IMMUNISATION
     Route: 030
     Dates: start: 20111122
  4. TELZIR [Suspect]
     Indication: HIV INFECTION
     Route: 048
     Dates: start: 2005
  5. VENTOLINE [Concomitant]
     Dosage: 1DF=5 MG/2,5 ML
  6. SALBUTAMOL SULFATE [Concomitant]
     Indication: CHRONIC OBSTRUCTIVE PULMONARY DISEASE
     Dosage: 1DF= 1 DOSE FROM TWICE TO SIX TIMES A DAY
     Route: 045
     Dates: start: 2009
  7. SYMBICORT [Concomitant]
     Indication: CHRONIC OBSTRUCTIVE PULMONARY DISEASE
     Dosage: 1DF= TURBUHALER 200/6 MICROGRAMS PER DOSE, POWDER FOR INHALATION (BUDESONIDE) 1 DOSE TWICE A DAY
     Route: 045
     Dates: start: 2011
  8. LEVOTHYROX [Concomitant]
     Indication: HYPOTHYROIDISM
     Route: 048
     Dates: start: 201112
  9. OMEPRAZOLE [Concomitant]
     Indication: PROPHYLAXIS AGAINST GASTROINTESTINAL ULCER
     Route: 048
     Dates: start: 2011
  10. LEXOMIL [Concomitant]
     Dosage: 1DF=12 MG, TABLET (BROMAZEPAM) ? OF TABLET IN MORNING AND AT LUNCHTIME AND HALF OF TAB EVENING
     Route: 048
     Dates: start: 2009
  11. ZOLPIDEM [Concomitant]
     Indication: INSOMNIA
     Route: 048
     Dates: start: 2009

REACTIONS (2)
  - Amyotrophy [Not Recovered/Not Resolved]
  - Axonal neuropathy [Not Recovered/Not Resolved]
